FAERS Safety Report 5979210-8 (Version None)
Quarter: 2008Q4

REPORT INFORMATION
  Report Type: 
  Country: None (occurrence: None)
  Receive Date: 20081204
  Receipt Date: 20080520
  Transmission Date: 20090506
  Serious: No
  Sender: FDA-Public Use
  Company Number: US-ABBOTT-08P-163-0455164-00

PATIENT
  Age: 42 Year
  Sex: Female

DRUGS (2)
  1. TRICOR [Suspect]
     Indication: BLOOD TRIGLYCERIDES
  2. TRICOR [Suspect]
     Indication: MYOCARDIAL INFARCTION

REACTIONS (6)
  - ERYTHEMA [None]
  - FEELING ABNORMAL [None]
  - MALAISE [None]
  - RASH PRURITIC [None]
  - SKIN INDURATION [None]
  - THERMAL BURN [None]
